FAERS Safety Report 4467055-X (Version None)
Quarter: 2004Q4

REPORT INFORMATION
  Report Type: 
  Country: None (occurrence: None)
  Receive Date: 20041001
  Receipt Date: 20041001
  Transmission Date: 20050328
  Serious: No
  Sender: FDA-Public Use
  Company Number: None

PATIENT
  Age: 63 Year
  Sex: Female

DRUGS (1)
  1. VICODIN [Suspect]
     Indication: OSTEOPENIA
     Dosage: ONE-TWO Q 6 H PRN

REACTIONS (1)
  - RASH [None]
